FAERS Safety Report 5375987-3 (Version None)
Quarter: 2007Q2

REPORT INFORMATION
  Report Type: 
  Country: None (occurrence: None)
  Receive Date: 20070627
  Receipt Date: 20070627
  Transmission Date: 20071010
  Serious: Yes (Hospitalization)
  Sender: FDA-Public Use
  Company Number: None

PATIENT
  Age: 55 Year
  Sex: Female
  Weight: 68.6 kg

DRUGS (7)
  1. DAPSONE [Suspect]
     Dosage: 100 MG  3 TIMES A WEEK  PO
     Route: 048
  2. LIPITOR [Concomitant]
  3. CELEBREX [Concomitant]
  4. REVLIMID(R) [Concomitant]
  5. ACYCLOVIR [Concomitant]
  6. AMBIEN [Concomitant]
  7. OXYCODONE HCL [Concomitant]

REACTIONS (6)
  - ASTHENIA [None]
  - CHILLS [None]
  - FEBRILE NEUTROPENIA [None]
  - MUCOUS MEMBRANE DISORDER [None]
  - PYREXIA [None]
  - RASH [None]
